FAERS Safety Report 15083316 (Version 1)
Quarter: 2018Q2

REPORT INFORMATION
  Report Type: Spontaneous
  Country: US (occurrence: US)
  Receive Date: 20180607
  Receipt Date: 20180607
  Transmission Date: 20180711
  Serious: Yes (Other)
  Sender: FDA-Public Use
  Company Number: None

PATIENT
  Age: 65 Year
  Sex: Female
  Weight: 56 kg

DRUGS (9)
  1. PERCOCET [Concomitant]
     Active Substance: ACETAMINOPHEN\OXYCODONE HYDROCHLORIDE
  2. XALATAN [Concomitant]
     Active Substance: LATANOPROST
  3. ALLOPURINOL. [Concomitant]
     Active Substance: ALLOPURINOL
  4. PROZAC [Concomitant]
     Active Substance: FLUOXETINE HYDROCHLORIDE
  5. COMBIVENT [Concomitant]
     Active Substance: ALBUTEROL SULFATE\IPRATROPIUM BROMIDE
  6. FENTANYL TRANSDERMAL SYSTEM [Suspect]
     Active Substance: FENTANYL
     Indication: PAIN
     Dosage: 15 PATCHES?APPLY 1 PATCH EVERY 3 DAYS, MAY CHANGE IN 48 HOURS IF PATCH DOES NOT ADHERE?SKIN
     Dates: start: 20180326
  7. LOVASTATIN. [Concomitant]
     Active Substance: LOVASTATIN
  8. NEURONTIN [Concomitant]
     Active Substance: GABAPENTIN
  9. FENOFIBRATE. [Concomitant]
     Active Substance: FENOFIBRATE

REACTIONS (2)
  - Product adhesion issue [None]
  - Product substitution issue [None]

NARRATIVE: CASE EVENT DATE: 20180518
